FAERS Safety Report 5161644-5 (Version None)
Quarter: 2006Q4

REPORT INFORMATION
  Report Type: 
  Country: None (occurrence: None)
  Receive Date: 20061130
  Receipt Date: 20051227
  Transmission Date: 20070319
  Serious: No
  Sender: FDA-Public Use
  Company Number: US-BRISTOL-MYERS SQUIBB COMPANY-13230198

PATIENT
  Age: 68 Year
  Sex: Female
  Weight: 104 kg

DRUGS (5)
  1. GLUCOPHAGE XR [Suspect]
  2. EFFEXOR [Concomitant]
  3. PREVACID [Concomitant]
  4. ESTRADIOL INJ [Concomitant]
  5. TOPROL-XL [Concomitant]

REACTIONS (1)
  - BLOOD GLUCOSE INCREASED [None]
